FAERS Safety Report 7311406-5 (Version None)
Quarter: 2011Q1

REPORT INFORMATION
  Report Type: 
  Country: None (occurrence: None)
  Receive Date: 20110224
  Receipt Date: 20110217
  Transmission Date: 20110831
  Serious: Yes (Other)
  Sender: FDA-Public Use
  Company Number: DE-PFIZER INC-2011000558

PATIENT
  Age: 66 Year
  Sex: Male
  Weight: 100 kg

DRUGS (6)
  1. LYRICA [Suspect]
     Dosage: 300 MG, DAILY
     Dates: start: 20100101, end: 20101227
  2. ESIDRIX [Concomitant]
     Dosage: 1 DF, 1X/DAY
  3. LYRICA [Suspect]
     Indication: POLYNEUROPATHY
     Dosage: 50 MG, 2X/DAY
     Route: 048
     Dates: start: 20100923, end: 20100101
  4. CIBACEN [Concomitant]
     Dosage: 10 MG, 1X/DAY
  5. BRISERIN N [Concomitant]
     Dosage: 1 DF, 1X/DAY
  6. SORTIS [Concomitant]
     Dosage: 40 MG, 1X/DAY

REACTIONS (4)
  - CATARACT [None]
  - AMBLYOPIA [None]
  - OCULAR HYPERTENSION [None]
  - ANISOMETROPIA [None]
